FAERS Safety Report 7919981-4 (Version None)
Quarter: 2011Q4

REPORT INFORMATION
  Report Type: 
  Country: None (occurrence: None)
  Receive Date: 20111117
  Receipt Date: 20111108
  Transmission Date: 20120403
  Serious: Yes (Hospitalization)
  Sender: FDA-Public Use
  Company Number: US-PFIZER INC-2011233814

PATIENT
  Sex: Female
  Weight: 60 kg

DRUGS (15)
  1. TEMSIROLIMUS [Suspect]
     Indication: MANTLE CELL LYMPHOMA
     Dosage: 25 MG, WEEKLY
     Route: 042
     Dates: start: 20110531, end: 20110923
  2. VELCADE [Suspect]
     Indication: MANTLE CELL LYMPHOMA
     Dosage: 2.736 MG, WEEKLY
     Route: 042
     Dates: start: 20110531
  3. VITAMIN D [Concomitant]
     Indication: SUPPLEMENTATION THERAPY
     Dosage: 1000 IU, 1X/DAY
     Route: 048
     Dates: start: 20110101
  4. PROTONIX [Concomitant]
     Indication: GASTROOESOPHAGEAL REFLUX DISEASE
     Dosage: 40 MG, UNK
     Route: 048
     Dates: start: 20100701
  5. COMPAZINE [Concomitant]
     Indication: NAUSEA
     Dosage: 10 MG, AS NEEDED
     Route: 048
     Dates: start: 20110701
  6. ALPRAZOLAM [Concomitant]
     Indication: ANXIETY
     Dosage: 0.5 MG, 1X/DAY
     Route: 048
     Dates: start: 20100701
  7. LOPERAMIDE [Concomitant]
     Indication: DIARRHOEA
     Dosage: 2 MG, AS NEEDED
     Route: 048
     Dates: start: 20110701
  8. LISINOPRIL [Concomitant]
     Indication: HYPERTENSION
     Dosage: 20 MG, 1X/DAY
     Route: 048
     Dates: start: 20100701
  9. VELCADE [Suspect]
     Dosage: 2.171 MG, WEEKLY
     Route: 042
     Dates: end: 20110923
  10. CALCIUM [Concomitant]
     Indication: SUPPLEMENTATION THERAPY
     Dosage: 500 MG, 1X/DAY
     Route: 048
     Dates: start: 20101101
  11. LORAZEPAM [Concomitant]
     Indication: NAUSEA
     Dosage: 0.5 MG, AS NEEDED
     Route: 048
     Dates: start: 20110701
  12. COMPAZINE [Concomitant]
     Indication: VOMITING
  13. LIPOIC ACID [Concomitant]
     Indication: SUPPLEMENTATION THERAPY
     Dosage: 600 MG, 1X/DAY
     Route: 048
     Dates: start: 20110916
  14. KLOR-CON [Concomitant]
     Indication: SUPPLEMENTATION THERAPY
     Dosage: 10 MEQ, 1X/DAY
     Route: 048
     Dates: start: 20100701
  15. LORAZEPAM [Concomitant]
     Indication: VOMITING

REACTIONS (3)
  - BLOOD CREATININE INCREASED [None]
  - ANAEMIA [None]
  - UROSEPSIS [None]
